FAERS Safety Report 4427745-1 (Version None)
Quarter: 2004Q3

REPORT INFORMATION
  Report Type: 
  Country: None (occurrence: None)
  Receive Date: 20040817
  Receipt Date: 20040715
  Transmission Date: 20050211
  Serious: Yes (Other)
  Sender: FDA-Public Use
  Company Number: IS-GLAXOSMITHKLINE-B0339671A

PATIENT
  Age: 52 Year
  Sex: Female
  Weight: 78 kg

DRUGS (3)
  1. LAMICTAL [Suspect]
     Indication: MAJOR DEPRESSION
     Dosage: 25MG FOUR TIMES PER DAY
     Route: 048
     Dates: start: 20040512, end: 20040702
  2. LITHIUM CITRATE [Concomitant]
     Route: 048
     Dates: start: 19960302
  3. CLOMIPRAMINE HCL [Concomitant]
     Dosage: 25MG SIX TIMES PER DAY
     Route: 065
     Dates: start: 19960302

REACTIONS (2)
  - PURPURA [None]
  - RASH [None]
